FAERS Safety Report 6592792-0 (Version None)
Quarter: 2010Q1

REPORT INFORMATION
  Report Type: 
  Country: None (occurrence: None)
  Receive Date: 20100212
  Receipt Date: 20100131
  Transmission Date: 20100710
  Serious: Yes (Death, Hospitalization)
  Sender: FDA-Public Use
  Company Number: TPA2009A01959

PATIENT
  Age: 8 Decade
  Sex: Male

DRUGS (3)
  1. ULORIC [Suspect]
     Indication: GOUT
     Dosage: 40 MG, 1 IN 1 D, PER ORAL
     Route: 048
     Dates: start: 20090101, end: 20090101
  2. UNKNOWN HYPERTENSION MEDICATION [Concomitant]
  3. UNKNOWN HYPERLIPIDEMIA MEDICATION [Concomitant]

REACTIONS (1)
  - MENINGITIS [None]
